FAERS Safety Report 9964407 (Version 2)
Quarter: 2014Q1

REPORT INFORMATION
  Report Type: Report from Study
  Country: RU (occurrence: RU)
  Receive Date: 20140305
  Receipt Date: 20140321
  Transmission Date: 20141002
  Serious: Yes (Hospitalization)
  Sender: FDA-Public Use
  Company Number: PHHO2014RU003094

PATIENT
  Age: 65 Year
  Sex: Female
  Weight: 105.5 kg

DRUGS (8)
  1. ACETYLSALICYLIC ACID [Suspect]
     Indication: THROMBOSIS PROPHYLAXIS
     Dosage: 125 MG, QD
     Route: 048
     Dates: start: 20131225, end: 20131230
  2. ENALAPRIL [Suspect]
     Indication: HYPERTENSION
     Dosage: 5 MG, BID
     Route: 048
     Dates: start: 20131225, end: 20131230
  3. BLINDED LAF237 [Suspect]
     Indication: TYPE 2 DIABETES MELLITUS
     Dosage: CODE NOT BROKEN
     Route: 048
     Dates: start: 20121022
  4. BLINDED NO TREATMENT RECEIVED [Suspect]
     Indication: TYPE 2 DIABETES MELLITUS
     Dosage: CODE NOT BROKEN
     Route: 048
     Dates: start: 20121022
  5. BLINDED PLACEBO [Suspect]
     Indication: TYPE 2 DIABETES MELLITUS
     Dosage: CODE NOT BROKEN
     Route: 048
     Dates: start: 20121022
  6. COMPARATOR METFORMIN [Suspect]
     Indication: TYPE 2 DIABETES MELLITUS
     Dosage: 1500 MG, UNK
     Route: 048
     Dates: start: 20121003
  7. CONCOR [Suspect]
     Dosage: 2.5 MG, UNK
     Dates: start: 20131225, end: 20131230
  8. ACTRAPID HM//INSULIN HUMAN [Suspect]
     Dosage: 24 U, UNK
     Dates: start: 20131225, end: 20131230

REACTIONS (1)
  - Forearm fracture [Recovering/Resolving]
